FAERS Safety Report 18087911 (Version 1)
Quarter: 2020Q3

REPORT INFORMATION
  Report Type: Spontaneous
  Country: US (occurrence: US)
  Receive Date: 20200729
  Receipt Date: 20200729
  Transmission Date: 20201103
  Serious: Yes (Other)
  Sender: FDA-Public Use
  Company Number: US-AMERICAN REGENT INC-2020001498

PATIENT
  Age: 46 Year
  Sex: Male

DRUGS (5)
  1. RITUXIMAB. [Concomitant]
     Active Substance: RITUXIMAB
     Indication: B-CELL LYMPHOMA
     Dosage: UNK
     Route: 065
  2. SODIUM BICARBONATE INJECTION, USP (0639?25) [Suspect]
     Active Substance: SODIUM BICARBONATE
     Indication: URINE ALKALINISATION THERAPY
  3. SODIUM BICARBONATE INJECTION, USP (0639?25) [Suspect]
     Active Substance: SODIUM BICARBONATE
     Indication: BLOOD VOLUME EXPANSION
     Dosage: UNK, IN INTRAVENOUS FLUID
     Route: 042
  4. METHOTREXATE. [Concomitant]
     Active Substance: METHOTREXATE
     Indication: B-CELL LYMPHOMA
     Dosage: 3.5 G/M2 (HIGH DOSE)
     Route: 042
  5. LEUCOVORIN CALCIUM INJECTION (0517?8605?25) [Suspect]
     Active Substance: LEUCOVORIN CALCIUM
     Indication: CHEMOTHERAPY TOXICITY ATTENUATION
     Dosage: UNK, INITIATED WITHIN 24 H OF MTX
     Route: 065

REACTIONS (5)
  - Drug ineffective for unapproved indication [Unknown]
  - Crystal nephropathy [Unknown]
  - Hepatotoxicity [Unknown]
  - Drug ineffective [Unknown]
  - Product use in unapproved indication [Unknown]
